FAERS Safety Report 20456355 (Version 2)
Quarter: 2025Q1

REPORT INFORMATION
  Report Type: Report from Study
  Country: US (occurrence: US)
  Receive Date: 20220210
  Receipt Date: 20250116
  Transmission Date: 20250408
  Serious: No
  Sender: SANOFI AVENTIS
  Company Number: US-SA-SAC20220204000722

PATIENT
  Age: 81 Year
  Sex: Female

DRUGS (11)
  1. DUPIXENT [Suspect]
     Active Substance: DUPILUMAB
     Indication: Dermatitis atopic
     Dosage: 300 MG, QOW
     Route: 058
     Dates: start: 20230602, end: 20250110
  2. NITROGLYCERIN [Concomitant]
     Active Substance: NITROGLYCERIN
     Indication: Chest pain
     Dates: start: 20220128
  3. HUMALOG [Concomitant]
     Active Substance: INSULIN LISPRO
  4. GLIPIZIDE [Concomitant]
     Active Substance: GLIPIZIDE
  5. TYLENOL [Concomitant]
     Active Substance: ACETAMINOPHEN
  6. LEVOTHYROXINE [Concomitant]
     Active Substance: LEVOTHYROXINE
  7. MOUNJARO [Concomitant]
     Active Substance: TIRZEPATIDE
  8. ATORVASTATIN [Concomitant]
     Active Substance: ATORVASTATIN
  9. AMLODIPINE [Concomitant]
     Active Substance: AMLODIPINE BESYLATE
  10. ELIQUIS [Concomitant]
     Active Substance: APIXABAN
  11. DOXEPIN [Concomitant]
     Active Substance: DOXEPIN

REACTIONS (1)
  - Wound [Unknown]
